FAERS Safety Report 7013404-8 (Version None)
Quarter: 2010Q3

REPORT INFORMATION
  Report Type: 
  Country: None (occurrence: None)
  Receive Date: 20100924
  Receipt Date: 20100922
  Transmission Date: 20110219
  Serious: Yes (Other)
  Sender: FDA-Public Use
  Company Number: US-BRISTOL-MYERS SQUIBB COMPANY-15299647

PATIENT
  Age: 33 Year
  Sex: Female

DRUGS (2)
  1. ABILIFY [Suspect]
     Indication: BIPOLAR DISORDER
     Dosage: INCREASED TO 10MG AFTER SOMETIME
     Dates: start: 20091214
  2. WELLBUTRIN [Suspect]

REACTIONS (2)
  - ABORTION SPONTANEOUS [None]
  - PREGNANCY [None]
